FAERS Safety Report 11378377 (Version 1)
Quarter: 2015Q3

REPORT INFORMATION
  Report Type: Spontaneous
  Country: US (occurrence: US)
  Receive Date: 20150811
  Receipt Date: 20150811
  Transmission Date: 20151125
  Serious: No
  Sender: FDA-Public Use
  Company Number: US-ELI_LILLY_AND_COMPANY-US201211006377

PATIENT
  Sex: Male
  Weight: 63.49 kg

DRUGS (1)
  1. CIALIS [Suspect]
     Active Substance: TADALAFIL
     Indication: PROSTATECTOMY
     Dosage: 5 MG, QD
     Dates: start: 20121024, end: 20130110

REACTIONS (2)
  - Off label use [Unknown]
  - Urine abnormality [Recovered/Resolved]
